FAERS Safety Report 7371155-4 (Version None)
Quarter: 2011Q1

REPORT INFORMATION
  Report Type: 
  Country: None (occurrence: None)
  Receive Date: 20110324
  Receipt Date: 20100921
  Transmission Date: 20110831
  Serious: Yes (Other)
  Sender: FDA-Public Use
  Company Number: US-BAYER-201021252NA

PATIENT
  Sex: Female
  Weight: 80.909 kg

DRUGS (8)
  1. OCELLA [Suspect]
     Route: 048
     Dates: start: 20000101, end: 20090101
  2. YASMIN [Suspect]
     Indication: ORAL CONTRACEPTION
     Route: 048
     Dates: start: 20000101, end: 20090101
  3. CELEXA [Concomitant]
  4. TRIMETHOBENZAMIDE HCL [Concomitant]
  5. YAZ [Suspect]
     Route: 048
     Dates: start: 20020101
  6. XANAX [Concomitant]
  7. HYOSCYAMINE SULFATE [Concomitant]
  8. DARVOCET-N 100 [Concomitant]

REACTIONS (9)
  - NAUSEA [None]
  - ABDOMINAL PAIN [None]
  - VOMITING [None]
  - DIARRHOEA [None]
  - WEIGHT DECREASED [None]
  - GALLBLADDER DISORDER [None]
  - ABDOMINAL DISCOMFORT [None]
  - ABDOMINAL DISTENSION [None]
  - ABDOMINAL PAIN LOWER [None]
